FAERS Safety Report 10944493 (Version 1)
Quarter: 2015Q1

REPORT INFORMATION
  Report Type: Spontaneous
  Country: KP (occurrence: KP)
  Receive Date: 20150323
  Receipt Date: 20150323
  Transmission Date: 20150721
  Serious: Yes (Other)
  Sender: FDA-Public Use
  Company Number: KP-CIPLA LTD.-2015KP02459

PATIENT

DRUGS (2)
  1. FINASTERIDE. [Suspect]
     Active Substance: FINASTERIDE
     Indication: BENIGN PROSTATIC HYPERPLASIA
     Dosage: UNK
  2. ALFUZOSIN [Suspect]
     Active Substance: ALFUZOSIN
     Indication: BENIGN PROSTATIC HYPERPLASIA
     Dosage: UNK

REACTIONS (4)
  - Hypotension [Unknown]
  - Dizziness [Unknown]
  - Colour blindness acquired [Recovered/Resolved]
  - Optic ischaemic neuropathy [Unknown]
